FAERS Safety Report 15694671 (Version 2)
Quarter: 2018Q4

REPORT INFORMATION
  Report Type: Spontaneous
  Country: US (occurrence: US)
  Receive Date: 20181206
  Receipt Date: 20181213
  Transmission Date: 20190205
  Serious: Yes (Hospitalization)
  Sender: FDA-Public Use
  Company Number: US-PFIZER INC-2018497755

PATIENT
  Age: 14 Year
  Sex: Female
  Weight: 42 kg

DRUGS (1)
  1. AMLODIPINE BESILATE [Suspect]
     Active Substance: AMLODIPINE BESYLATE
     Indication: HYPERTENSION
     Dosage: 15 MG, DAILY (APPROXIMATELY 450 MG, 4 HOURS AFTER INGESTION OF A MONTH^S SUPPLY)
     Route: 048

REACTIONS (2)
  - Intentional product misuse [Recovering/Resolving]
  - Toxicity to various agents [Recovering/Resolving]
